FAERS Safety Report 26119145 (Version 1)
Quarter: 2025Q4

REPORT INFORMATION
  Report Type: Spontaneous
  Country: US (occurrence: US)
  Receive Date: 20251204
  Receipt Date: 20251204
  Transmission Date: 20260118
  Serious: No
  Sender: ACCORD
  Company Number: US-Accord-495473

PATIENT
  Age: 31 Year
  Sex: Female
  Weight: 68.04 kg

DRUGS (3)
  1. LEVOTHYROXINE [Suspect]
     Active Substance: LEVOTHYROXINE
     Indication: Hypothyroidism
     Dosage: STRENGTH: 100 MCG; DAILY
     Route: 048
     Dates: start: 202505
  2. SELENIUM [Concomitant]
     Active Substance: SELENIUM
     Indication: Hypothyroidism
     Dosage: 200 MCG PER DAY
  3. LEVOTHYROXINE [Suspect]
     Active Substance: LEVOTHYROXINE
     Indication: Hypothyroidism
     Dosage: DAILY
     Route: 048
     Dates: start: 202506

REACTIONS (9)
  - Menstrual disorder [Unknown]
  - Alopecia [Unknown]
  - Product solubility abnormal [Unknown]
  - Incorrect dose administered [Unknown]
  - Product residue present [Unknown]
  - Palpitations [Recovering/Resolving]
  - Brain fog [Recovering/Resolving]
  - Product substitution issue [Unknown]
  - Heart rate increased [Unknown]

NARRATIVE: CASE EVENT DATE: 20250101
